FAERS Safety Report 15258362 (Version 8)
Quarter: 2022Q4

REPORT INFORMATION
  Report Type: Spontaneous
  Country: GB (occurrence: GB)
  Receive Date: 20180809
  Receipt Date: 20221128
  Transmission Date: 20230112
  Serious: Yes (Life-Threatening, Hospitalization, Other)
  Sender: FDA-Public Use
  Company Number: GB-MLMSERVICE-20180723-1294927-1

PATIENT
  Age: 21 Year
  Sex: Male

DRUGS (5)
  1. RISPERIDONE [Suspect]
     Active Substance: RISPERIDONE
     Indication: Substance use
     Dosage: UNK, EXCESS AMOUNTS
     Route: 065
  2. DULOXETINE [Suspect]
     Active Substance: DULOXETINE
     Indication: Substance use
     Dosage: UNK, EXCESS AMOUNTS
     Route: 065
  3. COCAINE [Suspect]
     Active Substance: COCAINE
     Indication: Substance use
     Dosage: UNK
     Route: 045
  4. DIAZEPAM [Suspect]
     Active Substance: DIAZEPAM
     Indication: Substance use
     Dosage: UNK
     Route: 065
  5. OMBERACETAM [Suspect]
     Active Substance: OMBERACETAM
     Indication: Substance use
     Dosage: UNK
     Route: 045

REACTIONS (14)
  - Hypotension [Unknown]
  - Somnolence [Unknown]
  - Overdose [Unknown]
  - Toxicity to various agents [Recovered/Resolved]
  - Substance use [Unknown]
  - Dystonia [Recovered/Resolved]
  - Facial spasm [Recovered/Resolved]
  - Sinus tachycardia [Unknown]
  - Muscle twitching [Recovered/Resolved]
  - Extrasystoles [Unknown]
  - Palpitations [Unknown]
  - Ventricular extrasystoles [Unknown]
  - Drug abuse [Unknown]
  - Coma scale abnormal [Unknown]
